FAERS Safety Report 5398803-2 (Version None)
Quarter: 2007Q3

REPORT INFORMATION
  Report Type: 
  Country: None (occurrence: None)
  Receive Date: 20070725
  Receipt Date: 20070725
  Transmission Date: 20080115
  Serious: No
  Sender: FDA-Public Use
  Company Number: None

PATIENT
  Age: 68 Year
  Sex: Male
  Weight: 78.9259 kg

DRUGS (2)
  1. PROPOFOL [Suspect]
     Indication: COLONOSCOPY
     Dosage: 260MG IV
     Route: 042
     Dates: start: 20070628
  2. PROPOFOL [Suspect]
     Indication: SEDATION
     Dosage: 260MG IV
     Route: 042
     Dates: start: 20070628

REACTIONS (2)
  - CHILLS [None]
  - PYREXIA [None]
